FAERS Safety Report 25569062 (Version 1)
Quarter: 2025Q3

REPORT INFORMATION
  Report Type: Spontaneous
  Country: GB (occurrence: GB)
  Receive Date: 20250716
  Receipt Date: 20250716
  Transmission Date: 20251020
  Serious: Yes (Disabling, Other)
  Sender: ELI LILLY AND COMPANY
  Company Number: GB-MHRA-TPP35647583C31083192YC1751546671967

PATIENT
  Age: 52 Year
  Sex: Female
  Weight: 128 kg

DRUGS (5)
  1. MOUNJARO [Suspect]
     Active Substance: TIRZEPATIDE
     Indication: Ill-defined disorder
     Dosage: 2.5 MG, WEEKLY (1/W)
     Route: 065
     Dates: start: 20241209
  2. MOUNJARO [Suspect]
     Active Substance: TIRZEPATIDE
     Indication: Ill-defined disorder
     Dosage: 5 MG, WEEKLY (1/W)
     Route: 065
     Dates: end: 20250415
  3. CLINDAMYCIN [Concomitant]
     Active Substance: CLINDAMYCIN
     Indication: Ill-defined disorder
     Route: 065
     Dates: start: 20250627
  4. INSTANT [Concomitant]
     Active Substance: ALCOHOL
     Indication: Ill-defined disorder
     Route: 065
     Dates: start: 20221121
  5. EMPAGLIFLOZIN [Concomitant]
     Active Substance: EMPAGLIFLOZIN
     Indication: Ill-defined disorder
     Dosage: TAKE ONE DAILY
     Dates: start: 20240822

REACTIONS (2)
  - Muscular weakness [Unknown]
  - Paraesthesia [Unknown]
